FAERS Safety Report 23253064 (Version 2)
Quarter: 2024Q1

REPORT INFORMATION
  Report Type: Spontaneous
  Country: FI (occurrence: FI)
  Receive Date: 20231201
  Receipt Date: 20240102
  Transmission Date: 20240410
  Serious: Yes (Other)
  Sender: FDA-Public Use
  Company Number: FI-CELLTRION INC.-2023FI022883

PATIENT

DRUGS (1)
  1. ADALIMUMAB [Suspect]
     Active Substance: ADALIMUMAB\ISOPROPYL ALCOHOL
     Indication: Crohn^s disease
     Dosage: 40 MG, EVERY 2 WEEKS, FORM STRENGTH: 40 MILLIGRAM
     Route: 058
     Dates: start: 20221010, end: 20230406

REACTIONS (4)
  - Rheumatoid arthritis [Unknown]
  - Synovitis [Unknown]
  - Myalgia [Unknown]
  - Joint effusion [Unknown]

NARRATIVE: CASE EVENT DATE: 20221001
